FAERS Safety Report 16490554 (Version 2)
Quarter: 2019Q3

REPORT INFORMATION
  Report Type: Spontaneous
  Country: US (occurrence: US)
  Receive Date: 20190628
  Receipt Date: 20190811
  Transmission Date: 20191004
  Serious: No
  Sender: FDA-Public Use
  Company Number: US-ASTRAZENECA-2019SE90390

PATIENT
  Age: 28092 Day
  Sex: Female
  Weight: 63 kg

DRUGS (3)
  1. METOPROLOL. [Suspect]
     Active Substance: METOPROLOL
     Indication: PALPITATIONS
     Dosage: UNKNOWN
     Route: 065
  2. SYMBICORT [Suspect]
     Active Substance: BUDESONIDE\FORMOTEROL FUMARATE DIHYDRATE
     Indication: GASTROOESOPHAGEAL REFLUX DISEASE
     Dosage: 160/4.5MCG, 2 PUFFS TWICE PER DAY
     Route: 055
     Dates: start: 2016
  3. DEXILANT [Concomitant]
     Active Substance: DEXLANSOPRAZOLE
     Indication: ABDOMINAL PAIN UPPER
     Dosage: 60.0MG UNKNOWN

REACTIONS (6)
  - Gastrooesophageal reflux disease [Unknown]
  - Off label use [Unknown]
  - Intentional device misuse [Recovered/Resolved]
  - Cough [Unknown]
  - Device issue [Unknown]
  - Product use in unapproved indication [Unknown]

NARRATIVE: CASE EVENT DATE: 20190618
